FAERS Safety Report 7593770-5 (Version None)
Quarter: 2011Q3

REPORT INFORMATION
  Report Type: 
  Country: None (occurrence: None)
  Receive Date: 20110706
  Receipt Date: 20110624
  Transmission Date: 20111222
  Serious: Yes (Hospitalization)
  Sender: FDA-Public Use
  Company Number: JP-UCBSA-015495

PATIENT
  Sex: Female
  Weight: 47.8 kg

DRUGS (34)
  1. LOXOPROFEN SODIUM [Concomitant]
     Dosage: ADEQUATE DOSE
     Dates: start: 20100414
  2. ISONIAZID [Concomitant]
     Dates: start: 20110427
  3. THEOPHYLLINE [Concomitant]
     Dates: start: 20110427
  4. TERBINAFINE HCL [Concomitant]
     Dates: start: 20101111
  5. CERTOLIZUMAB PEGOL [Suspect]
     Indication: RHEUMATOID ARTHRITIS
     Route: 058
     Dates: start: 20091210, end: 20100707
  6. THEOPHYLLINE [Concomitant]
     Dates: start: 20060101
  7. SODIUM AZULENE SULFONATE L-GLUTAMINE [Concomitant]
     Dates: start: 20110427
  8. SULFAMETHOXAZOLE AND TRIMETHOPRIM [Concomitant]
     Dosage: 4 TABLETS A WEEK
     Dates: start: 20110302
  9. SULFASALAZINE [Concomitant]
     Dosage: ONE-POINT SUSPENSION OF THE ADMINISTRATION
     Dates: start: 20081020
  10. BUCILLAMINE [Concomitant]
     Dates: start: 20070625, end: 20100803
  11. DIFLUCORTOLONE VALERATE [Concomitant]
     Dosage: ADEQUATE DOSE
     Dates: start: 20100617, end: 20100625
  12. PREDNISOLONE [Concomitant]
     Dates: start: 20110427
  13. SODIUM RISEDRONATE HYDRATE [Concomitant]
     Dosage: ONE POINT SUSPENSION OF THE ADMINISTRATION
     Dates: start: 20081020
  14. FAMOTIDINE [Concomitant]
     Dates: start: 20081020
  15. FAMOTIDINE [Concomitant]
     Dates: start: 20110427
  16. ATORVASTATIN CALCIUM [Concomitant]
     Dates: start: 20100203
  17. LIRANAFTATE [Concomitant]
     Dosage: ADEQUATE DOSE
     Dates: start: 20100823
  18. LIRANAFTATE [Concomitant]
     Dosage: ADEQUATE DOSE
     Dates: start: 20110330
  19. CERTOLIZUMAB PEGOL [Suspect]
     Route: 058
     Dates: start: 20110510
  20. PREDNISOLONE [Concomitant]
     Dates: start: 20100527, end: 20100721
  21. SENNOSIDE [Concomitant]
     Dates: start: 20060613
  22. AMPHOTERICIN B [Concomitant]
     Dates: start: 20110427
  23. CERTOLIZUMAB PEGOL [Suspect]
     Route: 058
     Dates: end: 20110413
  24. PREDNISOLONE [Concomitant]
     Dates: start: 20060613
  25. ATORVASTATIN CALCIUM [Concomitant]
     Dates: start: 20110427
  26. AMPHOTERICIN B [Concomitant]
     Dates: start: 20100623
  27. SENNOSIDE [Concomitant]
     Dates: start: 20110302
  28. SODIUM AZULENE SULFONATE L-GLUTAMINE [Concomitant]
     Dates: start: 20060613
  29. OLOPATADINE HYDROCHLORIDE [Concomitant]
     Dates: start: 20100617, end: 20100625
  30. VIDARABINE [Concomitant]
     Dosage: ADEQUATE DOSE
     Dates: start: 20100804
  31. DIFLUCORTOLONE VALERATE [Concomitant]
     Dosage: ADEQUATE DOSE
     Dates: start: 20110330
  32. SULFASALAZINE [Concomitant]
     Dates: start: 20110502
  33. AURANOFIN [Concomitant]
     Dates: start: 20070402, end: 20101012
  34. ISONIAZID [Concomitant]
     Dates: start: 20090803

REACTIONS (2)
  - DIZZINESS [None]
  - DERMAL CYST [None]
